FAERS Safety Report 4648813-5 (Version None)
Quarter: 2005Q2

REPORT INFORMATION
  Report Type: 
  Country: None (occurrence: None)
  Receive Date: 20050427
  Receipt Date: 20050411
  Transmission Date: 20051028
  Serious: No
  Sender: FDA-Public Use
  Company Number: 2005GB00522

PATIENT
  Age: 54 Year
  Sex: Female

DRUGS (6)
  1. MARCAINE [Suspect]
  2. DEPO-MEDRONE [Suspect]
     Dates: start: 20031001
  3. FENTANYL [Concomitant]
  4. CLONIDINE [Concomitant]
  5. OMNIPAQUE 140 [Concomitant]
  6. DEPO-MEDRONE [Suspect]
     Dates: start: 20040901

REACTIONS (6)
  - BURNING SENSATION [None]
  - CHEST DISCOMFORT [None]
  - FLUSHING [None]
  - HEADACHE [None]
  - INTRAOCULAR PRESSURE INCREASED [None]
  - RETINAL HAEMORRHAGE [None]
